FAERS Safety Report 11127553 (Version 1)
Quarter: 2015Q2

REPORT INFORMATION
  Report Type: Spontaneous
  Country: US (occurrence: None)
  Receive Date: 20150520
  Receipt Date: 20150520
  Transmission Date: 20150821
  Serious: No
  Sender: FDA-Public Use
  Company Number: None

PATIENT
  Age: 75 Year
  Sex: Male

DRUGS (8)
  1. TRAMADOL [Concomitant]
     Active Substance: TRAMADOL
  2. ALENDRONATE [Concomitant]
     Active Substance: ALENDRONATE SODIUM
  3. FINASTERIDE. [Concomitant]
     Active Substance: FINASTERIDE
  4. AMPYRA [Suspect]
     Active Substance: DALFAMPRIDINE
     Indication: MULTIPLE SCLEROSIS
     Route: 048
     Dates: start: 201010
  5. TAMSULOSIN [Concomitant]
     Active Substance: TAMSULOSIN
  6. LEVOTHYROXINE [Concomitant]
     Active Substance: LEVOTHYROXINE
  7. DRONABINOL. [Concomitant]
     Active Substance: DRONABINOL
  8. TRIAMCINOLONE ACETONIDE. [Concomitant]
     Active Substance: TRIAMCINOLONE ACETONIDE

REACTIONS (1)
  - Glycosylated haemoglobin increased [None]

NARRATIVE: CASE EVENT DATE: 20150127
